FAERS Safety Report 20210792 (Version 1)
Quarter: 2021Q4

REPORT INFORMATION
  Report Type: Report from Study
  Country: CA (occurrence: CA)
  Receive Date: 20211221
  Receipt Date: 20211221
  Transmission Date: 20220304
  Serious: Yes (Other)
  Sender: FDA-Public Use
  Company Number: CA-JNJFOC-20211235903

PATIENT
  Age: 58 Year
  Sex: Female

DRUGS (1)
  1. REMICADE [Suspect]
     Active Substance: INFLIXIMAB
     Indication: Colitis ulcerative
     Dosage: LAST INFUSION RECEIVED ON 29/OCT/2021
     Route: 042
     Dates: start: 20151114

REACTIONS (1)
  - Mammoplasty [Recovering/Resolving]

NARRATIVE: CASE EVENT DATE: 20211201
